FAERS Safety Report 12283731 (Version 1)
Quarter: 2016Q2

REPORT INFORMATION
  Report Type: Spontaneous
  Country: US (occurrence: US)
  Receive Date: 20160419
  Receipt Date: 20160419
  Transmission Date: 20160815
  Serious: No
  Sender: FDA-Public Use
  Company Number: US-BANPHARM-20154345

PATIENT
  Age: 82 Year
  Sex: Female
  Weight: 66.68 kg

DRUGS (4)
  1. ALEVE [Suspect]
     Active Substance: NAPROXEN SODIUM
     Indication: PAIN
     Dosage: 1 DF, QD,
     Route: 048
     Dates: start: 1995
  2. ASCORBIC ACID. [Concomitant]
     Active Substance: ASCORBIC ACID
  3. TUMERIC [Concomitant]
     Active Substance: TURMERIC
  4. NEUROTIN [Concomitant]
     Active Substance: GABAPENTIN

REACTIONS (3)
  - Glossodynia [Recovered/Resolved]
  - Product taste abnormal [Recovered/Resolved]
  - Therapeutic response unexpected [Unknown]

NARRATIVE: CASE EVENT DATE: 20151018
